FAERS Safety Report 6822632-3 (Version None)
Quarter: 2010Q3

REPORT INFORMATION
  Report Type: 
  Country: None (occurrence: None)
  Receive Date: 20100706
  Receipt Date: 20100706
  Transmission Date: 20110219
  Serious: Yes (Life-Threatening)
  Sender: FDA-Public Use
  Company Number: None

PATIENT
  Age: 42 Year
  Sex: Female
  Weight: 61.2356 kg

DRUGS (6)
  1. ESTRACE [Suspect]
     Indication: POSTOPERATIVE CARE
     Dosage: SMALL AMOUNT IN VAGINA 2 TIMES A WEEK VAG
     Route: 067
     Dates: start: 20080229, end: 20080515
  2. ESTRACE [Suspect]
     Indication: VAGINAL DISORDER
     Dosage: SMALL AMOUNT IN VAGINA 2 TIMES A WEEK VAG
     Route: 067
     Dates: start: 20080229, end: 20080515
  3. ESTRACE [Suspect]
     Indication: VAGINAL OPERATION
     Dosage: SMALL AMOUNT IN VAGINA 2 TIMES A WEEK VAG
     Route: 067
     Dates: start: 20080229, end: 20080515
  4. ESTRACE [Suspect]
     Indication: POSTOPERATIVE CARE
     Dosage: SMALL AMOUNT IN VAGINA 2 TIMES A WEEK VAG
     Route: 067
     Dates: start: 20091015, end: 20100524
  5. ESTRACE [Suspect]
     Indication: VAGINAL DISORDER
     Dosage: SMALL AMOUNT IN VAGINA 2 TIMES A WEEK VAG
     Route: 067
     Dates: start: 20091015, end: 20100524
  6. ESTRACE [Suspect]
     Indication: VAGINAL OPERATION
     Dosage: SMALL AMOUNT IN VAGINA 2 TIMES A WEEK VAG
     Route: 067
     Dates: start: 20091015, end: 20100524

REACTIONS (3)
  - BREAST CANCER IN SITU [None]
  - OESTROGEN RECEPTOR ASSAY POSITIVE [None]
  - PROGESTERONE RECEPTOR ASSAY POSITIVE [None]
